FAERS Safety Report 6273378-4 (Version None)
Quarter: 2009Q3

REPORT INFORMATION
  Report Type: 
  Country: None (occurrence: None)
  Receive Date: 20090720
  Receipt Date: 20090715
  Transmission Date: 20100115
  Serious: Yes (Death)
  Sender: FDA-Public Use
  Company Number: AT-BAYER-200925452GPV

PATIENT
  Age: 49 Year
  Sex: Male
  Weight: 76 kg

DRUGS (9)
  1. MABCAMPATH [Suspect]
     Indication: CHRONIC LYMPHOCYTIC LEUKAEMIA
     Dosage: 1X3MG/D, 4X10MG/D
     Route: 058
     Dates: start: 20090615, end: 20090626
  2. DIBONDRIN [Concomitant]
     Indication: PROPHYLAXIS
     Route: 065
     Dates: start: 20090615, end: 20090626
  3. MEXALEN [Concomitant]
     Indication: PROPHYLAXIS
     Route: 065
     Dates: start: 20090615, end: 20090626
  4. RITUXIMAB [Concomitant]
     Indication: CHRONIC LYMPHOCYTIC LEUKAEMIA
     Dosage: FIRST-LINE R-CHOP
     Route: 065
  5. CYCLOPHOSPHAMIDE [Concomitant]
     Indication: CHRONIC LYMPHOCYTIC LEUKAEMIA
     Dosage: FIRST-LINE R-CHOP
     Route: 065
  6. DOXORUBICIN HCL [Concomitant]
     Indication: CHRONIC LYMPHOCYTIC LEUKAEMIA
     Dosage: FIRST-LINE R-CHOP
     Route: 065
  7. VINCRISTINE [Concomitant]
     Indication: CHRONIC LYMPHOCYTIC LEUKAEMIA
     Dosage: FIRST-LINE R-CHOP
     Route: 065
  8. PREDNISOLONE [Concomitant]
     Indication: CHRONIC LYMPHOCYTIC LEUKAEMIA
     Dosage: FIRST-LINE R-CHOP
     Route: 065
  9. METHYLPREDNISOLONE [Concomitant]
     Indication: CHRONIC LYMPHOCYTIC LEUKAEMIA
     Dosage: HIGH-DOSE METHYLPREDNISOLONE (SECOND LINE TREATMENT)
     Route: 065

REACTIONS (1)
  - DEATH [None]
